FAERS Safety Report 12079639 (Version 7)
Quarter: 2017Q2

REPORT INFORMATION
  Report Type: Spontaneous
  Country: GB (occurrence: GB)
  Receive Date: 20160216
  Receipt Date: 20170525
  Transmission Date: 20170829
  Serious: Yes (Hospitalization, Other)
  Sender: FDA-Public Use
  Company Number: GB-JNJFOC-20160208597

PATIENT
  Sex: Female

DRUGS (2)
  1. SIMPONI [Suspect]
     Active Substance: GOLIMUMAB
     Indication: PRODUCT USED FOR UNKNOWN INDICATION
     Route: 058
     Dates: start: 20170518
  2. SIMPONI [Suspect]
     Active Substance: GOLIMUMAB
     Indication: PRODUCT USED FOR UNKNOWN INDICATION
     Route: 058
     Dates: start: 20161208, end: 20161208

REACTIONS (8)
  - Deafness unilateral [Unknown]
  - Lower respiratory tract infection [Unknown]
  - Blood test abnormal [Unknown]
  - Surgery [Unknown]
  - Gingivitis [Unknown]
  - Herpes zoster [Not Recovered/Not Resolved]
  - Influenza [Unknown]
  - Condition aggravated [Unknown]
